FAERS Safety Report 9108162 (Version 1)
Quarter: 2013Q1

REPORT INFORMATION
  Report Type: Spontaneous
  Country: CA (occurrence: CA)
  Receive Date: 20130221
  Receipt Date: 20130221
  Transmission Date: 20140127
  Serious: No
  Sender: FDA-Public Use
  Company Number: CA-JNJFOC-20130204493

PATIENT
  Age: 33 Year
  Sex: Female

DRUGS (2)
  1. DURAGESIC [Suspect]
     Indication: PRODUCT USED FOR UNKNOWN INDICATION
     Dosage: 100 UG/HR + 25 UG/HR
     Route: 062
  2. DURAGESIC [Suspect]
     Indication: PRODUCT USED FOR UNKNOWN INDICATION
     Dosage: 100 UG/HR + 25 UG/HR
     Route: 062

REACTIONS (1)
  - Wrong technique in drug usage process [Not Recovered/Not Resolved]
